FAERS Safety Report 9482143 (Version 1)
Quarter: 2013Q3

REPORT INFORMATION
  Report Type: Spontaneous
  Country: US (occurrence: US)
  Receive Date: 20130828
  Receipt Date: 20130828
  Transmission Date: 20140515
  Serious: Yes (Life-Threatening, Hospitalization, Other)
  Sender: FDA-Public Use
  Company Number: US-TEVA-428329USA

PATIENT
  Age: 52 Year
  Sex: Female

DRUGS (4)
  1. BACLOFEN [Suspect]
     Indication: ANXIETY
     Dosage: 30 MILLIGRAM DAILY;
     Dates: start: 201105
  2. BACLOFEN [Suspect]
     Dosage: 120 MILLIGRAM DAILY;
  3. REBIF [Suspect]
     Indication: MULTIPLE SCLEROSIS
     Route: 058
     Dates: start: 20080105, end: 201105
  4. REBIF [Suspect]

REACTIONS (5)
  - Adverse event [Unknown]
  - Dyspnoea [Unknown]
  - Chest pain [Unknown]
  - Multiple sclerosis relapse [Recovered/Resolved]
  - Blood pressure increased [Recovered/Resolved]
